FAERS Safety Report 8538709-0 (Version None)
Quarter: 2012Q3

REPORT INFORMATION
  Report Type: 
  Country: None (occurrence: None)
  Receive Date: 20120726
  Receipt Date: 20120509
  Transmission Date: 20120928
  Serious: No
  Sender: FDA-Public Use
  Company Number: US-MYLANLABS-2012S1009647

PATIENT
  Sex: Female

DRUGS (1)
  1. VANCOMYCIN HYCHLORIDE [Suspect]
     Indication: INFECTION
     Route: 042
     Dates: start: 20110901, end: 20110901

REACTIONS (1)
  - RED MAN SYNDROME [None]
